FAERS Safety Report 11155707 (Version 1)
Quarter: 2015Q2

REPORT INFORMATION
  Report Type: Report from Study
  Country: BR (occurrence: BR)
  Receive Date: 20150602
  Receipt Date: 20150602
  Transmission Date: 20150821
  Serious: Yes (Death, Other)
  Sender: FDA-Public Use
  Company Number: PHHY2015BR065594

PATIENT
  Sex: Female
  Weight: 47 kg

DRUGS (1)
  1. DIOVAN HCT [Suspect]
     Active Substance: HYDROCHLOROTHIAZIDE\VALSARTAN
     Indication: HYPERTENSION
     Dosage: 1 DF, QD (320/12.5 MG)
     Route: 065

REACTIONS (3)
  - Malaise [Unknown]
  - Respiratory disorder [Fatal]
  - Infarction [Fatal]
